FAERS Safety Report 20840202 (Version 1)
Quarter: 2022Q2

REPORT INFORMATION
  Report Type: Report from Study
  Country: DE (occurrence: DE)
  Receive Date: 20220517
  Receipt Date: 20220517
  Transmission Date: 20220721
  Serious: Yes (Other)
  Sender: FDA-Public Use
  Company Number: DE-ROCHE-3086345

PATIENT
  Age: 84 Year
  Sex: Female
  Weight: 54.6 kg

DRUGS (4)
  1. TRASTUZUMAB [Suspect]
     Active Substance: TRASTUZUMAB
     Indication: Breast cancer
     Dosage: 600 MG
     Route: 041
     Dates: end: 20211027
  2. CAPECITABINE [Suspect]
     Active Substance: CAPECITABINE
     Indication: Breast cancer
     Dosage: DATE OF LAST APPLICATION PRIOR EVENT ON 09NOV2021
     Route: 048
     Dates: start: 20210830, end: 20211114
  3. RAMIPRIL [Concomitant]
     Active Substance: RAMIPRIL
     Dosage: 2.5 MG
     Route: 048
  4. AMINOPHYLLINE\QUININE SULFATE [Concomitant]
     Active Substance: AMINOPHYLLINE\QUININE SULFATE
     Dosage: UNK
     Route: 048

REACTIONS (1)
  - Skin necrosis [Unknown]

NARRATIVE: CASE EVENT DATE: 20211109
